FAERS Safety Report 19873036 (Version 1)
Quarter: 2021Q3

REPORT INFORMATION
  Report Type: Spontaneous
  Country: US (occurrence: US)
  Receive Date: 20210922
  Receipt Date: 20210922
  Transmission Date: 20211014
  Serious: Yes (Other)
  Sender: FDA-Public Use
  Company Number: US-JAZZ-2021-US-016833

PATIENT
  Age: 22 Year
  Sex: Female
  Weight: 55.1 kg

DRUGS (1)
  1. XYREM [Suspect]
     Active Substance: SODIUM OXYBATE
     Indication: PRODUCT USED FOR UNKNOWN INDICATION
     Dosage: 8.5 MILLIGRAM OVER MANY HOURS
     Route: 048

REACTIONS (5)
  - Drug abuse [Unknown]
  - Confusional state [Recovered/Resolved]
  - Nervous system disorder [Recovered/Resolved]
  - Depressed level of consciousness [Recovered/Resolved]
  - Cardio-respiratory arrest [Recovered/Resolved]
